FAERS Safety Report 8327976-4 (Version None)
Quarter: 2012Q2

REPORT INFORMATION
  Report Type: 
  Country: None (occurrence: None)
  Receive Date: 20120502
  Receipt Date: 20120419
  Transmission Date: 20120825
  Serious: Yes (Hospitalization, Other)
  Sender: FDA-Public Use
  Company Number: FR-CELGENEUS-056-C5013-11112331

PATIENT
  Sex: Male
  Weight: 90 kg

DRUGS (7)
  1. LENALIDOMIDE [Suspect]
     Route: 048
     Dates: start: 20111017, end: 20111114
  2. SPIRIVA [Concomitant]
     Route: 065
  3. AUGMENTIN [Concomitant]
     Indication: BRONCHITIS
     Route: 048
     Dates: start: 20111110, end: 20111114
  4. FORADIL [Concomitant]
     Route: 065
  5. LENALIDOMIDE [Suspect]
     Route: 048
     Dates: start: 20110523
  6. APROVEL [Concomitant]
     Indication: HYPERTENSION
     Route: 065
  7. NOVOPLUMON [Concomitant]
     Route: 065

REACTIONS (5)
  - ADENOCARCINOMA PANCREAS [None]
  - BILE DUCT OBSTRUCTION [None]
  - DUODENAL ULCER [None]
  - LIVER DISORDER [None]
  - GAMMA-GLUTAMYLTRANSFERASE INCREASED [None]
